FAERS Safety Report 9648660 (Version 1)
Quarter: 2013Q4

REPORT INFORMATION
  Report Type: Spontaneous
  Country: US (occurrence: None)
  Receive Date: 20131025
  Receipt Date: 20131025
  Transmission Date: 20140711
  Serious: No
  Sender: FDA-Public Use
  Company Number: None

PATIENT
  Age: 39 Year
  Sex: Female
  Weight: 79.38 kg

DRUGS (3)
  1. AUGMENTIN [Suspect]
  2. PREDNISONE [Suspect]
  3. MULTI-VITAMIN [Concomitant]

REACTIONS (2)
  - Acne [None]
  - Rash [None]
